FAERS Safety Report 23923444 (Version 1)
Quarter: 2024Q2

REPORT INFORMATION
  Report Type: Spontaneous
  Country: FR (occurrence: FR)
  Receive Date: 20240531
  Receipt Date: 20240531
  Transmission Date: 20240716
  Serious: Yes (Hospitalization, Congenital Anomaly, Other)
  Sender: FDA-Public Use
  Company Number: FR-SANDOZ-SDZ2024FR053256

PATIENT
  Age: 0 Year
  Sex: Male
  Weight: 3 kg

DRUGS (8)
  1. URSODIOL [Suspect]
     Active Substance: URSODIOL
     Indication: Cholestasis of pregnancy
     Dosage: UNK
     Route: 064
     Dates: start: 20240105, end: 20240217
  2. FLUOXETINE HYDROCHLORIDE [Suspect]
     Active Substance: FLUOXETINE HYDROCHLORIDE
     Indication: Bipolar disorder
     Dosage: 10 MG, QD
     Route: 064
     Dates: start: 20230616, end: 20240313
  3. INSULIN ASPART [Suspect]
     Active Substance: INSULIN ASPART
     Indication: Gestational diabetes
     Dosage: UNK
     Route: 064
     Dates: start: 20231027, end: 20240217
  4. LEVOTHYROXINE SODIUM [Suspect]
     Active Substance: LEVOTHYROXINE SODIUM
     Indication: Hypothyroidism
     Dosage: UNK
     Route: 064
     Dates: start: 2023
  5. LAMICTAL [Suspect]
     Active Substance: LAMOTRIGINE
     Indication: Bipolar disorder
     Dosage: 200 MG, QD
     Route: 064
     Dates: start: 20230616, end: 20240217
  6. BROMAZEPAM [Suspect]
     Active Substance: BROMAZEPAM
     Dosage: 1.5 MG, QD
     Route: 064
     Dates: end: 20240123
  7. BROMAZEPAM [Suspect]
     Active Substance: BROMAZEPAM
     Indication: Bipolar disorder
     Dosage: 4.5 MG, QD
     Route: 064
     Dates: start: 20230616
  8. OXAZEPAM [Suspect]
     Active Substance: OXAZEPAM
     Indication: Bipolar disorder
     Dosage: 10 MG, QD
     Route: 064
     Dates: start: 20240123, end: 20240217

REACTIONS (7)
  - Foetal macrosomia [Not Recovered/Not Resolved]
  - Gastrooesophageal reflux disease [Recovered/Resolved]
  - Neonatal hyponatraemia [Unknown]
  - Crying [Unknown]
  - Foetal exposure during pregnancy [Recovered/Resolved]
  - Premature baby [Recovered/Resolved]
  - Blood bicarbonate decreased [Recovered/Resolved]

NARRATIVE: CASE EVENT DATE: 20230616
